FAERS Safety Report 24138500 (Version 2)
Quarter: 2024Q3

REPORT INFORMATION
  Report Type: Spontaneous
  Country: US (occurrence: US)
  Receive Date: 20240725
  Receipt Date: 20240801
  Transmission Date: 20241017
  Serious: No
  Sender: BIOGEN
  Company Number: US-BIOGEN-2021BI01038785

PATIENT
  Age: 69 Year
  Sex: Female

DRUGS (21)
  1. AVONEX [Suspect]
     Active Substance: INTERFERON BETA-1A
     Indication: Relapsing-remitting multiple sclerosis
     Route: 050
     Dates: start: 20210805
  2. AVONEX [Suspect]
     Active Substance: INTERFERON BETA-1A
  3. AVONEX [Suspect]
     Active Substance: INTERFERON BETA-1A
  4. AVONEX [Suspect]
     Active Substance: INTERFERON BETA-1A
  5. AVONEX PEN [Suspect]
     Active Substance: INTERFERON BETA-1A
     Indication: Relapsing-remitting multiple sclerosis
     Route: 050
     Dates: start: 20240110
  6. AVONEX PEN [Suspect]
     Active Substance: INTERFERON BETA-1A
  7. AVONEX PEN [Suspect]
     Active Substance: INTERFERON BETA-1A
  8. AVONEX PEN [Suspect]
     Active Substance: INTERFERON BETA-1A
  9. IRON [Concomitant]
     Active Substance: IRON
     Route: 050
  10. ASPIRIN [Concomitant]
     Active Substance: ASPIRIN
     Route: 050
  11. TUMS [Concomitant]
     Active Substance: CALCIUM CARBONATE
     Route: 050
  12. METFORMIN HYDROCHLORIDE [Concomitant]
     Active Substance: METFORMIN HYDROCHLORIDE
     Route: 050
  13. LISINOPRIL [Concomitant]
     Active Substance: LISINOPRIL
     Route: 050
  14. AMLODIPINE BESYLATE [Concomitant]
     Active Substance: AMLODIPINE BESYLATE
     Route: 050
  15. PRAVASTATIN SODIUM [Concomitant]
     Active Substance: PRAVASTATIN SODIUM
     Route: 050
  16. HUMALOG [Concomitant]
     Active Substance: INSULIN LISPRO
     Route: 050
  17. LEVEMIR [Concomitant]
     Active Substance: INSULIN DETEMIR
     Route: 050
  18. COMBIGAN [Concomitant]
     Active Substance: BRIMONIDINE TARTRATE\TIMOLOL MALEATE
     Route: 050
  19. FLUOXETINE [Concomitant]
     Active Substance: FLUOXETINE HYDROCHLORIDE
     Route: 050
  20. LATANOPROST [Concomitant]
     Active Substance: LATANOPROST
     Route: 050
  21. COCONUT OIL ORGANIC [Concomitant]
     Route: 050

REACTIONS (9)
  - Laziness [Recovered/Resolved]
  - Feeling abnormal [Recovered/Resolved]
  - Feeling cold [Recovered/Resolved]
  - Injection site pain [Unknown]
  - Fatigue [Unknown]
  - Influenza like illness [Recovered/Resolved]
  - Myalgia [Recovered/Resolved]
  - Bone pain [Recovered/Resolved]
  - Asthenia [Recovered/Resolved]

NARRATIVE: CASE EVENT DATE: 20210801
